FAERS Safety Report 6342827-5 (Version None)
Quarter: 2009Q3

REPORT INFORMATION
  Report Type: 
  Country: None (occurrence: None)
  Receive Date: 20090908
  Receipt Date: 20090824
  Transmission Date: 20100115
  Serious: Yes (Hospitalization, Other)
  Sender: FDA-Public Use
  Company Number: CN-ROCHE-652292

PATIENT
  Sex: Male
  Weight: 46 kg

DRUGS (6)
  1. CELLCEPT [Suspect]
     Indication: RENAL TRANSPLANT
     Dosage: THERAPY PERIOD WAS SHORT.
     Route: 048
     Dates: start: 20000701, end: 20000701
  2. CELLCEPT [Suspect]
     Route: 048
     Dates: start: 20090201, end: 20090801
  3. CELLCEPT [Suspect]
     Route: 048
     Dates: start: 20090801
  4. UNSPECIFIED DRUG [Concomitant]
     Indication: RENAL TRANSPLANT
  5. PROGRAF [Concomitant]
     Indication: RENAL TRANSPLANT
     Dosage: MANUFACTORY WAS REPORTED AS FUJISAWA.
     Route: 048
     Dates: start: 20090801
  6. MEDROL [Concomitant]
     Indication: RENAL TRANSPLANT
     Dosage: MANUFACTORY WAS REPORTED AS PHARMACIA.
     Route: 048
     Dates: start: 20090801

REACTIONS (3)
  - GRAND MAL CONVULSION [None]
  - PROGRESSIVE MULTIFOCAL LEUKOENCEPHALOPATHY [None]
  - RENAL FAILURE [None]
